FAERS Safety Report 6634842-9 (Version None)
Quarter: 2010Q1

REPORT INFORMATION
  Report Type: 
  Country: None (occurrence: None)
  Receive Date: 20100315
  Receipt Date: 20100305
  Transmission Date: 20100710
  Serious: Yes (Hospitalization)
  Sender: FDA-Public Use
  Company Number: NL-ASTRAZENECA-2010SE09500

PATIENT
  Age: 63 Year
  Sex: Male

DRUGS (5)
  1. ESOMEPRAZOLE [Suspect]
  2. LISINOPRIL [Concomitant]
  3. BISOPROLOL [Concomitant]
  4. ATORVASTATIN CALCIUM [Concomitant]
  5. COUMARIN DERVIATIVE [Concomitant]

REACTIONS (3)
  - HYPOCALCAEMIA [None]
  - HYPOKALAEMIA [None]
  - HYPOMAGNESAEMIA [None]
